FAERS Safety Report 8302474-2 (Version None)
Quarter: 2012Q2

REPORT INFORMATION
  Report Type: 
  Country: None (occurrence: None)
  Receive Date: 20120420
  Receipt Date: 20120409
  Transmission Date: 20120825
  Serious: Yes (Death)
  Sender: FDA-Public Use
  Company Number: US-SPECTRUM PHARMACEUTICALS, INC.-12-Z-US-00059

PATIENT

DRUGS (8)
  1. MELPHALAN HYDROCHLORIDE [Suspect]
     Indication: SURGICAL PRECONDITIONING
     Dosage: 100 MG/M2, QD, ON DAYS -2 AND -1
     Route: 065
  2. RITUXIMAB [Suspect]
     Indication: MULTIPLE MYELOMA
     Dosage: 250 MG/M2, SINGLE, ON DAY -22
     Route: 042
  3. RITUXIMAB [Suspect]
     Indication: SURGICAL PRECONDITIONING
     Dosage: 250 MG/M2, SINGLE, ON DAY -14
     Route: 042
  4. MELPHALAN HYDROCHLORIDE [Suspect]
     Indication: MULTIPLE MYELOMA
  5. AUTOLOGOUS STEM CELL TRANSPLANT [Suspect]
     Indication: MULTIPLE MYELOMA
     Dosage: AT LEAST 2 X 10(6) CD34/KG STEM CELLS, ON DAY 0
     Route: 065
  6. ZEVALIN [Suspect]
     Indication: SURGICAL PRECONDITIONING
     Dosage: 20 GY, SINGLE, ON DAY -14
     Route: 042
  7. ZEVALIN [Suspect]
     Indication: MULTIPLE MYELOMA
     Dosage: UNK, ON DAY -22
     Route: 065
  8. LEUKINE [Concomitant]
     Indication: PRODUCT USED FOR UNKNOWN INDICATION
     Dosage: UNK
     Route: 065

REACTIONS (1)
  - GASTROINTESTINAL NECROSIS [None]
